FAERS Safety Report 8479228-X (Version None)
Quarter: 2012Q2

REPORT INFORMATION
  Report Type: 
  Country: None (occurrence: None)
  Receive Date: 20120629
  Receipt Date: 20120620
  Transmission Date: 20120825
  Serious: Yes (Hospitalization)
  Sender: FDA-Public Use
  Company Number: US-GLAXOSMITHKLINE-A0811661A

PATIENT
  Age: 66 Year
  Sex: Male
  Weight: 108.6 kg

DRUGS (4)
  1. LISINOPRIL [Concomitant]
  2. AVANDIA [Suspect]
     Indication: TYPE 2 DIABETES MELLITUS
     Dosage: 8MG TWICE PER DAY
     Route: 048
     Dates: start: 20040610, end: 20050919
  3. SIMVASTATIN [Concomitant]
  4. GLUCOPHAGE [Concomitant]

REACTIONS (3)
  - HEART INJURY [None]
  - CARDIAC FAILURE CONGESTIVE [None]
  - MYOCARDIAL INFARCTION [None]
